FAERS Safety Report 7526541-6 (Version None)
Quarter: 2011Q2

REPORT INFORMATION
  Report Type: 
  Country: None (occurrence: None)
  Receive Date: 20110606
  Receipt Date: 20110523
  Transmission Date: 20111010
  Serious: Yes (Other)
  Sender: FDA-Public Use
  Company Number: US-UCBSA-033730

PATIENT
  Sex: Female

DRUGS (2)
  1. CIMZIA [Suspect]
     Dosage: ON WEEK 0, 2, 4
     Route: 058
     Dates: start: 20110301, end: 20110101
  2. CIMZIA [Suspect]
     Route: 058
     Dates: start: 20110101

REACTIONS (5)
  - OEDEMA PERIPHERAL [None]
  - FLUID RETENTION [None]
  - FATIGUE [None]
  - WEIGHT INCREASED [None]
  - CARDIAC FAILURE CONGESTIVE [None]
